FAERS Safety Report 4683277-7 (Version None)
Quarter: 2005Q2

REPORT INFORMATION
  Report Type: 
  Country: None (occurrence: None)
  Receive Date: 20050602
  Receipt Date: 20050307
  Transmission Date: 20051028
  Serious: No
  Sender: FDA-Public Use
  Company Number: USA050393010

PATIENT
  Sex: Female

DRUGS (2)
  1. CYMBALTA [Suspect]
     Indication: DEPRESSION
     Dosage: 60 MG/D
  2. CYMBALTA [Suspect]
     Indication: PAIN
     Dosage: 60 MG/D

REACTIONS (1)
  - IDIOSYNCRATIC DRUG REACTION [None]
